FAERS Safety Report 19167748 (Version 1)
Quarter: 2021Q2

REPORT INFORMATION
  Report Type: Spontaneous
  Country: GB (occurrence: GB)
  Receive Date: 20210422
  Receipt Date: 20210422
  Transmission Date: 20210717
  Serious: Yes (Disabling)
  Sender: FDA-Public Use
  Company Number: GB-DRREDDYS-GER/UKI/21/0134482

PATIENT
  Age: 35 Year
  Sex: Female
  Weight: 73.47 kg

DRUGS (2)
  1. FLUOXETINE [Suspect]
     Active Substance: FLUOXETINE HYDROCHLORIDE
     Indication: ILL-DEFINED DISORDER
  2. OLANZAPINE. [Concomitant]
     Active Substance: OLANZAPINE
     Indication: ILL-DEFINED DISORDER

REACTIONS (1)
  - Gastrooesophageal reflux disease [Not Recovered/Not Resolved]

NARRATIVE: CASE EVENT DATE: 20210106
